FAERS Safety Report 8777865 (Version 1)
Quarter: 2012Q4

REPORT INFORMATION
  Report Type: 
  Country: AR (occurrence: AR)
  Receive Date: 20120912
  Receipt Date: 20120912
  Transmission Date: 20130627
  Serious: Yes (Other)
  Sender: FDA-Public Use
  Company Number: PHHY2012AR078601

PATIENT
  Age: 79 Year
  Sex: Female

DRUGS (1)
  1. DIVOAN D [Suspect]
     Indication: BLOOD PRESSURE ABNORMAL
     Dosage: 1 DF (vals 160 mg, hydr 12.5 mg), daily
     Dates: start: 201208

REACTIONS (3)
  - Fall [Recovered/Resolved]
  - Upper limb fracture [Recovered/Resolved]
  - Injury [Recovered/Resolved]
